FAERS Safety Report 5610966-X (Version None)
Quarter: 2008Q1

REPORT INFORMATION
  Report Type: 
  Country: None (occurrence: None)
  Receive Date: 20080129
  Receipt Date: 20080118
  Transmission Date: 20080703
  Serious: Yes (Death, Hospitalization)
  Sender: FDA-Public Use
  Company Number: 2007BI025254

PATIENT
  Age: 67 Year
  Sex: Female

DRUGS (1)
  1. AVONEX [Suspect]
     Indication: MULTIPLE SCLEROSIS
     Dosage: IM
     Route: 030

REACTIONS (5)
  - BACTERAEMIA [None]
  - HAEMOTHORAX [None]
  - MALAISE [None]
  - PLATELET COUNT DECREASED [None]
  - RESPIRATORY FAILURE [None]
